FAERS Safety Report 16228774 (Version 3)
Quarter: 2019Q2

REPORT INFORMATION
  Report Type: Spontaneous
  Country: JP (occurrence: JP)
  Receive Date: 20190423
  Receipt Date: 20190626
  Transmission Date: 20190711
  Serious: Yes (Hospitalization)
  Sender: FDA-Public Use
  Company Number: PHJP2019JP003194

PATIENT
  Age: 82 Year
  Sex: Female

DRUGS (5)
  1. TIGASON [Concomitant]
     Active Substance: ETRETINATE
     Indication: PRODUCT USED FOR UNKNOWN INDICATION
     Dosage: 40 MG, UNK
     Route: 048
     Dates: start: 20190221, end: 20190304
  2. POLARAMINE [Concomitant]
     Active Substance: DEXCHLORPHENIRAMINE MALEATE
     Indication: PRODUCT USED FOR UNKNOWN INDICATION
     Dosage: 6 MG, UNK
     Route: 048
     Dates: start: 20190321, end: 20190325
  3. VIBRAMYCIN [Suspect]
     Active Substance: DOXYCYCLINE
     Indication: PRODUCT USED FOR UNKNOWN INDICATION
     Dosage: 100 MG, QD
     Route: 048
     Dates: start: 20190313, end: 20190318
  4. COSENTYX [Suspect]
     Active Substance: SECUKINUMAB
     Indication: PUSTULAR PSORIASIS
     Dosage: 300 MG, UNK
     Route: 058
     Dates: start: 20190220, end: 20190319
  5. RUPAFIN [Concomitant]
     Active Substance: RUPATADINE FUMARATE
     Indication: PRODUCT USED FOR UNKNOWN INDICATION
     Dosage: 20 MG, UNK
     Route: 048
     Dates: start: 20190312, end: 20190412

REACTIONS (9)
  - Skin weeping [Recovering/Resolving]
  - Folliculitis [Recovering/Resolving]
  - Pustular psoriasis [Recovering/Resolving]
  - Face oedema [Recovering/Resolving]
  - Generalised erythema [Recovering/Resolving]
  - Concomitant disease progression [Recovering/Resolving]
  - Disease progression [Recovering/Resolving]
  - Concomitant disease aggravated [Recovering/Resolving]
  - Eosinophil count increased [Recovering/Resolving]

NARRATIVE: CASE EVENT DATE: 20190302
